FAERS Safety Report 9229089 (Version 2)
Quarter: 2013Q3

REPORT INFORMATION
  Report Type: Spontaneous
  Country: US (occurrence: US)
  Receive Date: 20130412
  Receipt Date: 20130724
  Transmission Date: 20140515
  Serious: No
  Sender: FDA-Public Use
  Company Number: US-ELI_LILLY_AND_COMPANY-US201304001273

PATIENT
  Age: 67 Year
  Sex: Female

DRUGS (17)
  1. FORTEO [Suspect]
     Indication: OSTEOPOROSIS
     Dosage: 0.08, ML, QD
     Route: 058
     Dates: start: 20120206, end: 20120807
  2. FORTEO [Suspect]
     Indication: FRACTURE
     Dosage: UNK, QD
  3. CALCITONIN SALMON [Concomitant]
     Route: 045
  4. LASIX [Concomitant]
  5. ALBUTEROL [Concomitant]
  6. LEVOTHYROXINE [Concomitant]
     Dosage: UNK
  7. WELLBUTRIN [Concomitant]
  8. CITALOPRAM [Concomitant]
  9. PREVACID [Concomitant]
  10. BACLOFEN [Concomitant]
  11. MOBIC [Concomitant]
  12. FOLIC ACID [Concomitant]
  13. CALCIUM [Concomitant]
  14. VITAMIN D [Concomitant]
  15. DITROPAN [Concomitant]
  16. ASPIRIN [Concomitant]
  17. METOPROLOL [Concomitant]

REACTIONS (4)
  - Drug administered at inappropriate site [Recovered/Resolved]
  - Foreign body [Recovered/Resolved]
  - Nasal discomfort [Recovered/Resolved]
  - Incorrect dose administered [Recovered/Resolved]
